FAERS Safety Report 7265158-8 (Version None)
Quarter: 2011Q1

REPORT INFORMATION
  Report Type: 
  Country: None (occurrence: None)
  Receive Date: 20110131
  Receipt Date: 20110128
  Transmission Date: 20110831
  Serious: Yes (Death)
  Sender: FDA-Public Use
  Company Number: PHHY2011IN06349

PATIENT
  Age: 22 Year
  Sex: Male

DRUGS (1)
  1. ASUNRA [Suspect]
     Dosage: 400 MG, UNK
     Route: 048

REACTIONS (2)
  - CHEST PAIN [None]
  - HAEMATEMESIS [None]
